FAERS Safety Report 6013587-2 (Version None)
Quarter: 2008Q4

REPORT INFORMATION
  Report Type: 
  Country: None (occurrence: None)
  Receive Date: 20081219
  Receipt Date: 20081209
  Transmission Date: 20090506
  Serious: No
  Sender: FDA-Public Use
  Company Number: US-JNJFOC-20081202832

PATIENT
  Sex: Female

DRUGS (5)
  1. INVEGA [Suspect]
     Indication: SCHIZOPHRENIA
     Route: 048
  2. RISPERDAL [Suspect]
     Indication: SCHIZOPHRENIA
     Route: 048
  3. LUVOX [Concomitant]
     Route: 048
  4. NAVANE [Concomitant]
     Route: 048
  5. COGENTIN [Concomitant]
     Route: 048

REACTIONS (1)
  - WEIGHT INCREASED [None]
